FAERS Safety Report 8854559 (Version 1)
Quarter: 2012Q4

REPORT INFORMATION
  Report Type: 
  Country: US (occurrence: US)
  Receive Date: 20121023
  Receipt Date: 20121023
  Transmission Date: 20130627
  Serious: Yes (Death)
  Sender: FDA-Public Use
  Company Number: US-MYLANLABS-2012S1021347

PATIENT
  Age: 71 Year
  Sex: Female

DRUGS (2)
  1. FENTANYL TRANSDERMAL SYSTEM [Suspect]
     Indication: FLANK PAIN
     Dosage: q72h
     Route: 062
     Dates: start: 20120726, end: 201207
  2. ATENOLOL [Concomitant]
     Indication: BLOOD PRESSURE INCREASED

REACTIONS (2)
  - Cardiac disorder [Fatal]
  - Emphysema [Fatal]
